FAERS Safety Report 22528251 (Version 1)
Quarter: 2023Q2

REPORT INFORMATION
  Report Type: Spontaneous
  Country: US (occurrence: US)
  Receive Date: 20230607
  Receipt Date: 20230607
  Transmission Date: 20230722
  Serious: Yes (Death, Other)
  Sender: FDA-Public Use
  Company Number: US-AMGEN-USASP2023094205

PATIENT

DRUGS (3)
  1. BEVACIZUMAB [Suspect]
     Active Substance: BEVACIZUMAB
     Indication: Maculopathy
     Dosage: UNK, Q4WK
  2. BEVACIZUMAB [Suspect]
     Active Substance: BEVACIZUMAB
     Indication: Metastases to eye
  3. BEVACIZUMAB [Suspect]
     Active Substance: BEVACIZUMAB
     Indication: Retinal detachment

REACTIONS (7)
  - Lung cancer metastatic [Fatal]
  - Breast cancer metastatic [Fatal]
  - Colon cancer metastatic [Fatal]
  - Thyroid cancer metastatic [Fatal]
  - Cataract [Unknown]
  - Visual acuity reduced [Unknown]
  - Off label use [Unknown]
